FAERS Safety Report 4366480-5 (Version None)
Quarter: 2004Q2

REPORT INFORMATION
  Report Type: 
  Country: None (occurrence: None)
  Receive Date: 20040527
  Receipt Date: 20040416
  Transmission Date: 20050107
  Serious: No
  Sender: FDA-Public Use
  Company Number: US-BRISTOL-MYERS SQUIBB COMPANY-12563805

PATIENT
  Sex: Male
  Weight: 101 kg

DRUGS (1)
  1. ERBITUX [Suspect]
     Indication: COLORECTAL CANCER
     Dosage: 1ST DOSE, 27FEB04: 800MG THEN DOSE REDUCED TO 500 MG WEEKLY
     Route: 042

REACTIONS (1)
  - RASH [None]
